FAERS Safety Report 20821939 (Version 1)
Quarter: 2022Q2

REPORT INFORMATION
  Report Type: Spontaneous
  Country: GB (occurrence: GB)
  Receive Date: 20220512
  Receipt Date: 20220512
  Transmission Date: 20220721
  Serious: Yes (Other)
  Sender: FDA-Public Use
  Company Number: GB-NOVOPROD-915981

PATIENT
  Sex: Female
  Weight: 3.15 kg

DRUGS (1)
  1. SAXENDA [Suspect]
     Active Substance: LIRAGLUTIDE
     Indication: Product used for unknown indication
     Dosage: 1.8 MG, QD
     Route: 064
     Dates: end: 20210711

REACTIONS (2)
  - Foetal monitoring abnormal [Unknown]
  - Foetal exposure during pregnancy [Recovered/Resolved]
